FAERS Safety Report 8073951-7 (Version None)
Quarter: 2011Q4

REPORT INFORMATION
  Report Type: 
  Country: None (occurrence: None)
  Receive Date: 20111221
  Receipt Date: 20110825
  Transmission Date: 20120403
  Serious: Yes (Hospitalization, Other)
  Sender: FDA-Public Use
  Company Number: PHHY2011US29424

PATIENT
  Age: 29 Year
  Sex: Female

DRUGS (1)
  1. EXJADE [Suspect]
     Dosage: 1500 MG, QD, ORAL
     Route: 048

REACTIONS (3)
  - SICKLE CELL ANAEMIA WITH CRISIS [None]
  - DYSPEPSIA [None]
  - DIZZINESS [None]
